FAERS Safety Report 5922968-4 (Version None)
Quarter: 2008Q4

REPORT INFORMATION
  Report Type: 
  Country: None (occurrence: None)
  Receive Date: 20081018
  Receipt Date: 20081007
  Transmission Date: 20090506
  Serious: Yes (Hospitalization, Other)
  Sender: FDA-Public Use
  Company Number: US-PFIZER INC-2008069095

PATIENT
  Sex: Female
  Weight: 77.1 kg

DRUGS (1)
  1. CHANTIX [Suspect]
     Indication: SMOKING CESSATION THERAPY
     Dosage: FREQ:DAILY
     Route: 048
     Dates: start: 20070215, end: 20070308

REACTIONS (8)
  - CHRONIC INFLAMMATORY DEMYELINATING POLYRADICULONEUROPATHY [None]
  - COMPLEMENT FACTOR C3 DECREASED [None]
  - DYSGEUSIA [None]
  - FEELING ABNORMAL [None]
  - GUILLAIN-BARRE SYNDROME [None]
  - INCORRECT DOSE ADMINISTERED [None]
  - MEMORY IMPAIRMENT [None]
  - SYSTEMIC LUPUS ERYTHEMATOSUS [None]
